FAERS Safety Report 24134597 (Version 1)
Quarter: 2024Q3

REPORT INFORMATION
  Report Type: Spontaneous
  Country: DK (occurrence: DK)
  Receive Date: 20240725
  Receipt Date: 20240725
  Transmission Date: 20241017
  Serious: Yes (Hospitalization, Other)
  Sender: NOVO NORDISK
  Company Number: None

PATIENT
  Age: 40 Year
  Sex: Male
  Weight: 126.3 kg

DRUGS (1)
  1. OZEMPIC [Suspect]
     Active Substance: SEMAGLUTIDE
     Indication: Type 2 diabetes mellitus
     Dosage: 2 MG, BIW
     Route: 058
     Dates: start: 20220711, end: 20240709

REACTIONS (4)
  - Duodenitis [Not Recovered/Not Resolved]
  - Abdominal pain [Unknown]
  - Pancreatitis acute [Not Recovered/Not Resolved]
  - Inappropriate schedule of product administration [Recovered/Resolved]

NARRATIVE: CASE EVENT DATE: 20220711
